FAERS Safety Report 7961324-4 (Version None)
Quarter: 2011Q4

REPORT INFORMATION
  Report Type: 
  Country: None (occurrence: None)
  Receive Date: 20111202
  Receipt Date: 20111202
  Transmission Date: 20120403
  Serious: No
  Sender: FDA-Public Use
  Company Number: None

PATIENT
  Age: 56 Year
  Sex: Male

DRUGS (6)
  1. ALPRAZOLAM [Concomitant]
  2. ARMODAFINIL [Concomitant]
  3. LEVOTHYROXINE SODIUM [Concomitant]
  4. AVONEX [Concomitant]
  5. AMPYRA [Suspect]
     Indication: MULTIPLE SCLEROSIS
     Dosage: AMPYRA 10 MG Q12H ORALLY
     Route: 048
  6. PAROXETINE HCL [Concomitant]

REACTIONS (1)
  - NO THERAPEUTIC RESPONSE [None]
